FAERS Safety Report 20016465 (Version 1)
Quarter: 2021Q4

REPORT INFORMATION
  Report Type: Spontaneous
  Country: US (occurrence: None)
  Receive Date: 20211103
  Receipt Date: 20211103
  Transmission Date: 20220304
  Serious: Yes (Other)
  Sender: FDA-Public Use
  Company Number: None

PATIENT
  Age: 62 Year
  Sex: Male
  Weight: 87.3 kg

DRUGS (5)
  1. ACETAMINOPHEN\HYDROCODONE BITARTRATE [Suspect]
     Active Substance: ACETAMINOPHEN\HYDROCODONE BITARTRATE
     Indication: Osteoarthritis
     Dosage: OTHER QUANTITY : 2 TABLET(S);?FREQUENCY : TWICE A DAY;?
     Route: 048
     Dates: start: 20211027, end: 20211031
  2. ASPIRIN [Concomitant]
     Active Substance: ASPIRIN
  3. LOSARTAN [Concomitant]
     Active Substance: LOSARTAN
  4. REPATHA [Concomitant]
     Active Substance: EVOLOCUMAB
  5. HYDROCODONE ACETAM [Concomitant]

REACTIONS (9)
  - Product substitution issue [None]
  - Drug ineffective [None]
  - Productive cough [None]
  - Suspected counterfeit product [None]
  - Urticaria [None]
  - Pruritus [None]
  - Hot flush [None]
  - Wheezing [None]
  - Heart rate increased [None]

NARRATIVE: CASE EVENT DATE: 20211027
